FAERS Safety Report 15134704 (Version 1)
Quarter: 2018Q3

REPORT INFORMATION
  Report Type: Spontaneous
  Country: US (occurrence: US)
  Receive Date: 20180615
  Receipt Date: 20180615
  Transmission Date: 20181010
  Serious: No
  Sender: FDA-Public Use
  Company Number: None

PATIENT

DRUGS (1)
  1. ACTINEX [Suspect]
     Active Substance: MASOPROCOL

REACTIONS (2)
  - Abdominal distension [None]
  - Drug ineffective [None]
